FAERS Safety Report 5475462-1 (Version None)
Quarter: 2007Q3

REPORT INFORMATION
  Report Type: 
  Country: None (occurrence: None)
  Receive Date: 20070904
  Receipt Date: 20070727
  Transmission Date: 20080115
  Serious: No
  Sender: FDA-Public Use
  Company Number: PHEH2007US08927

PATIENT
  Sex: Female

DRUGS (2)
  1. ENABLEX [Suspect]
     Indication: URINARY INCONTINENCE
     Dosage: 7.5 MG/D ORAL; 15 MG/D, ORAL; 7.5 MG/D, ORAL
     Route: 048
     Dates: start: 20070501
  2. ENABLEX [Suspect]
     Indication: URINARY INCONTINENCE
     Dosage: 7.5 MG/D ORAL; 15 MG/D, ORAL; 7.5 MG/D, ORAL
     Route: 048
     Dates: start: 20070617

REACTIONS (4)
  - DIZZINESS [None]
  - DRUG INEFFECTIVE [None]
  - DRY MOUTH [None]
  - PHARYNGOLARYNGEAL PAIN [None]
